FAERS Safety Report 4765808-1 (Version None)
Quarter: 2005Q3

REPORT INFORMATION
  Report Type: 
  Country: None (occurrence: None)
  Receive Date: 20050906
  Receipt Date: 20050825
  Transmission Date: 20060218
  Serious: Yes (Life-Threatening)
  Sender: FDA-Public Use
  Company Number: 12170

PATIENT
  Age: 52 Year
  Sex: Male

DRUGS (1)
  1. ERYTHROMYCIN [Suspect]
     Indication: LOWER RESPIRATORY TRACT INFECTION
     Dosage: PO
     Route: 048
     Dates: start: 20020306, end: 20050307

REACTIONS (9)
  - BLOOD PRESSURE DIASTOLIC INCREASED [None]
  - CARDIAC FAILURE [None]
  - CARDIAC VENTRICULAR DISORDER [None]
  - CARDIOMEGALY [None]
  - DILATATION VENTRICULAR [None]
  - DYSPNOEA [None]
  - HYPERTENSIVE HEART DISEASE [None]
  - OVERWEIGHT [None]
  - VENTRICULAR DYSFUNCTION [None]
